FAERS Safety Report 15300420 (Version 1)
Quarter: 2018Q3

REPORT INFORMATION
  Report Type: Spontaneous
  Country: US (occurrence: US)
  Receive Date: 20180821
  Receipt Date: 20180821
  Transmission Date: 20181010
  Serious: No
  Sender: FDA-Public Use
  Company Number: US-TEVA-816558ACC

PATIENT
  Sex: Female

DRUGS (1)
  1. AZURETTE [Suspect]
     Active Substance: DESOGESTREL\ETHINYL ESTRADIOL
     Dosage: DOSE STRENGTH:  0.15/0.02 AND 0.01

REACTIONS (2)
  - Mood altered [Unknown]
  - Depression [Unknown]
